FAERS Safety Report 22590909 (Version 1)
Quarter: 2023Q2

REPORT INFORMATION
  Report Type: Spontaneous
  Country: US (occurrence: None)
  Receive Date: 20230609
  Receipt Date: 20230609
  Transmission Date: 20230722
  Serious: Yes (Death)
  Sender: FDA-Public Use
  Company Number: None

PATIENT
  Age: 89 Year
  Sex: Male

DRUGS (9)
  1. VELTASSA [Suspect]
     Active Substance: PATIROMER
     Indication: Hyperkalaemia
     Dosage: 1 POUND QD PO
     Route: 048
     Dates: start: 202203, end: 202206
  2. ASPIRIN [Concomitant]
     Active Substance: ASPIRIN
  3. MULTIVITAMIN ADULT [Concomitant]
  4. VITAMIN B12 [Concomitant]
     Active Substance: CYANOCOBALAMIN
  5. VITAMIN D3 [Concomitant]
     Active Substance: CHOLECALCIFEROL
  6. ALBUTEROL SULFATE [Concomitant]
     Active Substance: ALBUTEROL SULFATE
  7. ESOMEPRAZOLE DR [Concomitant]
  8. CROMOLYN SOD [Concomitant]
  9. LATANOPROST [Concomitant]
     Active Substance: LATANOPROST

REACTIONS (1)
  - Renal failure [None]

NARRATIVE: CASE EVENT DATE: 20230604
